FAERS Safety Report 18586708 (Version 6)
Quarter: 2021Q2

REPORT INFORMATION
  Report Type: Spontaneous
  Country: US (occurrence: US)
  Receive Date: 20201207
  Receipt Date: 20210414
  Transmission Date: 20210717
  Serious: No
  Sender: FDA-Public Use
  Company Number: US-ELI_LILLY_AND_COMPANY-US202011010348

PATIENT
  Age: 11 Year
  Sex: Female

DRUGS (7)
  1. HUMATROPE [Suspect]
     Active Substance: SOMATROPIN
     Indication: PRODUCT USED FOR UNKNOWN INDICATION
     Dosage: 1 MG, EACH EVENING
     Route: 058
     Dates: start: 20201119
  2. HUMATROPE [Suspect]
     Active Substance: SOMATROPIN
     Dosage: 1 MG, EACH EVENING
     Route: 058
  3. HUMATROPE [Suspect]
     Active Substance: SOMATROPIN
     Dosage: 1 MG, EACH EVENING
     Route: 058
  4. HUMATROPE [Suspect]
     Active Substance: SOMATROPIN
     Dosage: UNK
  5. HUMATROPE [Suspect]
     Active Substance: SOMATROPIN
     Dosage: UNK
  6. HUMATROPE [Suspect]
     Active Substance: SOMATROPIN
     Dosage: 1 MG, EACH EVENING
     Route: 058
  7. HUMATROPE [Suspect]
     Active Substance: SOMATROPIN
     Dosage: 1 MG, EACH EVENING
     Route: 058

REACTIONS (13)
  - Tenderness [Unknown]
  - Injection site pain [Unknown]
  - Wrong dose [Unknown]
  - Product dispensing error [Unknown]
  - Dyspnoea [Unknown]
  - Injection site bruising [Unknown]
  - Wrong technique in product usage process [Unknown]
  - Product dose omission issue [Unknown]
  - Product dose omission issue [Unknown]
  - Nasal injury [Unknown]
  - Nasal discomfort [Unknown]
  - Anxiety [Unknown]
  - Injection site pain [Unknown]

NARRATIVE: CASE EVENT DATE: 202011
